FAERS Safety Report 21047125 (Version 2)
Quarter: 2022Q3

REPORT INFORMATION
  Report Type: Report from Study
  Country: US (occurrence: US)
  Receive Date: 20220706
  Receipt Date: 20220718
  Transmission Date: 20221027
  Serious: Yes (Death)
  Sender: FDA-Public Use
  Company Number: US-HELSINN-2021US023512

PATIENT
  Sex: Male

DRUGS (2)
  1. TRUSELTIQ [Suspect]
     Active Substance: INFIGRATINIB
     Indication: Cholangiocarcinoma
     Dosage: 125 MILLIGRAM, QD
     Route: 048
     Dates: start: 20210924
  2. TRUSELTIQ [Suspect]
     Active Substance: INFIGRATINIB
     Dosage: 75MG, QD
     Route: 048

REACTIONS (11)
  - Cholangiocarcinoma [Fatal]
  - Coagulopathy [Unknown]
  - Oral pain [Unknown]
  - Skin exfoliation [Unknown]
  - Therapy change [Unknown]
  - Genital discomfort [Unknown]
  - Dry eye [Unknown]
  - Decreased appetite [Unknown]
  - Pain in extremity [Unknown]
  - Nail disorder [Unknown]
  - Palmar-plantar erythrodysaesthesia syndrome [Unknown]
